FAERS Safety Report 6154636-0 (Version None)
Quarter: 2009Q2

REPORT INFORMATION
  Report Type: 
  Country: None (occurrence: None)
  Receive Date: 20090414
  Receipt Date: 20090409
  Transmission Date: 20091009
  Serious: Yes (Death, Hospitalization)
  Sender: FDA-Public Use
  Company Number: DE-ELI_LILLY_AND_COMPANY-DE200904001970

PATIENT
  Age: 80 Year
  Sex: Female

DRUGS (5)
  1. BYETTA [Suspect]
     Indication: TYPE 2 DIABETES MELLITUS
     Dosage: 5 UG, 2/D
     Route: 058
     Dates: start: 20090201
  2. TAVOR [Concomitant]
  3. AQUAPHOR [Concomitant]
  4. PANTOZOL [Concomitant]
  5. ALOPURINOL [Concomitant]

REACTIONS (2)
  - DEATH [None]
  - HOSPITALISATION [None]
